FAERS Safety Report 4286798-4 (Version None)
Quarter: 2004Q1

REPORT INFORMATION
  Report Type: 
  Country: None (occurrence: None)
  Receive Date: 20040206
  Receipt Date: 20040130
  Transmission Date: 20041129
  Serious: Yes (Disabling)
  Sender: FDA-Public Use
  Company Number: AT-ROCHE-357604

PATIENT
  Age: 8 Year
  Sex: Female

DRUGS (1)
  1. INTERFERON ALFA-2A [Suspect]
     Indication: DRUG USE FOR UNKNOWN INDICATION
     Route: 037

REACTIONS (1)
  - CEREBRAL ATROPHY [None]
